FAERS Safety Report 7425657-2 (Version None)
Quarter: 2011Q2

REPORT INFORMATION
  Report Type: 
  Country: None (occurrence: None)
  Receive Date: 20110420
  Receipt Date: 20110411
  Transmission Date: 20111010
  Serious: Yes (Other)
  Sender: FDA-Public Use
  Company Number: FR-ASTRAZENECA-2011SE20644

PATIENT
  Age: 34 Year
  Sex: Female

DRUGS (4)
  1. SCANDONEST PLAIN [Suspect]
     Dosage: 1.8 ML
     Route: 053
  2. MACROGOL 4000 [Suspect]
  3. ACETAMINOPHEN [Suspect]
     Indication: ANALGESIC THERAPY
  4. PHLOROGLUCINOL/TRIMETHYLPHLOROGLUCINOL [Suspect]

REACTIONS (2)
  - VIITH NERVE PARALYSIS [None]
  - DRUG EXPOSURE DURING PREGNANCY [None]
